FAERS Safety Report 24444592 (Version 1)
Quarter: 2024Q4

REPORT INFORMATION
  Report Type: Spontaneous
  Country: US (occurrence: None)
  Receive Date: 20241015
  Receipt Date: 20241015
  Transmission Date: 20250115
  Serious: Yes (Other)
  Sender: Public
  Company Number: None

PATIENT
  Age: 15 Month
  Sex: Male
  Weight: 9.05 kg

DRUGS (1)
  1. BEYFORTUS [Suspect]
     Active Substance: NIRSEVIMAB-ALIP
     Dosage: OTHER FREQUENCY : ONCE;?
     Route: 030
     Dates: start: 20241015, end: 20241015

REACTIONS (2)
  - Rash papular [None]
  - Erythema [None]

NARRATIVE: CASE EVENT DATE: 20241015
